FAERS Safety Report 20982158 (Version 1)
Quarter: 2022Q2

REPORT INFORMATION
  Report Type: Spontaneous
  Country: US (occurrence: US)
  Receive Date: 20220620
  Receipt Date: 20220620
  Transmission Date: 20220721
  Serious: Yes (Death, Life-Threatening, Other)
  Sender: FDA-Public Use
  Company Number: US-PFIZER INC-PV202200000356

PATIENT
  Sex: Male

DRUGS (4)
  1. VINCRISTINE SULFATE [Suspect]
     Active Substance: VINCRISTINE SULFATE
     Indication: Hepatoblastoma
     Dosage: UNK,2  CYCLES
  2. DOXORUBICIN HYDROCHLORIDE [Suspect]
     Active Substance: DOXORUBICIN HYDROCHLORIDE
     Indication: Hepatoblastoma
     Dosage: UNK, 2 CYCLES
  3. CISPLATIN [Suspect]
     Active Substance: CISPLATIN
     Indication: Hepatoblastoma
     Dosage: UNK, 2 CYCLES
  4. FLUOROURACIL SODIUM [Suspect]
     Active Substance: FLUOROURACIL SODIUM
     Indication: Hepatoblastoma
     Dosage: UNK, 2 CYCLES

REACTIONS (5)
  - Lung infiltration [Fatal]
  - Skin lesion [Fatal]
  - Pyrexia [Fatal]
  - Measles [Fatal]
  - Haemophagocytic lymphohistiocytosis [Fatal]
